FAERS Safety Report 4801627-5 (Version None)
Quarter: 2005Q4

REPORT INFORMATION
  Report Type: 
  Country: None (occurrence: None)
  Receive Date: 20051018
  Receipt Date: 20051005
  Transmission Date: 20060501
  Serious: Yes (Life-Threatening, Hospitalization)
  Sender: FDA-Public Use
  Company Number: US-BRISTOL-MYERS SQUIBB COMPANY-13134911

PATIENT
  Age: 41 Year
  Sex: Female
  Weight: 67 kg

DRUGS (12)
  1. PACLITAXEL [Suspect]
     Indication: NON-SMALL CELL LUNG CANCER
     Route: 042
     Dates: start: 20050412, end: 20050512
  2. CARBOPLATIN [Suspect]
     Indication: NON-SMALL CELL LUNG CANCER
     Route: 042
     Dates: start: 20050412, end: 20050412
  3. BENADRYL ALLERGY SINUS HEADACHE [Concomitant]
     Dates: start: 20050413
  4. COMPAZINE [Concomitant]
     Dates: start: 20050322
  5. KLONOPIN [Concomitant]
     Dates: start: 20050318
  6. MULTI-VITAMINS [Concomitant]
     Dates: start: 20050412
  7. OXYCODONE HCL [Concomitant]
     Dates: start: 20050331
  8. OXYCONTIN [Concomitant]
     Dates: start: 20050322
  9. PROZAC [Concomitant]
     Dates: start: 20050318
  10. WELLBUTRIN [Concomitant]
     Dates: start: 20050412
  11. ZOFRAN [Concomitant]
     Dates: start: 20050412
  12. CIPRO [Concomitant]
     Dates: start: 20050419, end: 20050428

REACTIONS (3)
  - DEHYDRATION [None]
  - NEUTROPENIA [None]
  - THROMBOCYTOPENIA [None]
